FAERS Safety Report 8767186 (Version 1)
Quarter: 2012Q4

REPORT INFORMATION
  Report Type: 
  Country: US (occurrence: US)
  Receive Date: 20120904
  Receipt Date: 20120904
  Transmission Date: 20130627
  Serious: Yes (Hospitalization, Disabling)
  Sender: FDA-Public Use
  Company Number: US-GLAXOSMITHKLINE-A0921317A

PATIENT
  Age: 55 Year
  Sex: Female

DRUGS (1)
  1. AVANDIA [Suspect]
     Indication: DIABETES MELLITUS
     Dosage: 4MG Unknown
     Route: 048
     Dates: start: 2003, end: 20061229

REACTIONS (18)
  - Cardiac failure [Not Recovered/Not Resolved]
  - Convulsion [Unknown]
  - Cerebrovascular accident [Unknown]
  - Nervous system disorder [Unknown]
  - Condition aggravated [Unknown]
  - Myocardial infarction [Unknown]
  - Loss of consciousness [Unknown]
  - Road traffic accident [Unknown]
  - Sleep apnoea syndrome [Unknown]
  - Upper respiratory tract infection [Unknown]
  - Headache [Unknown]
  - Eye haemorrhage [Unknown]
  - Anaemia [Unknown]
  - Hearing impaired [Unknown]
  - Hypertension [Unknown]
  - Depression [Unknown]
  - Nervous system disorder [Unknown]
  - Epilepsy [Unknown]
